FAERS Safety Report 16911357 (Version 2)
Quarter: 2019Q4

REPORT INFORMATION
  Report Type: Spontaneous
  Country: AR (occurrence: AR)
  Receive Date: 20191013
  Receipt Date: 20191017
  Transmission Date: 20200122
  Serious: Yes (Hospitalization)
  Sender: FDA-Public Use
  Company Number: AR-AMGEN-ARGSP2019139926

PATIENT
  Age: 37 Year
  Sex: Female

DRUGS (5)
  1. ENBREL [Suspect]
     Active Substance: ETANERCEPT
     Indication: RHEUMATOID ARTHRITIS
     Dosage: 50 MG, WEEKLY
     Route: 065
     Dates: start: 20190817
  2. LEVOTIROXINA [LEVOTHYROXINE] [Concomitant]
     Dosage: 50 MILLIGRAM, QD
  3. LEVOTIROXINA [LEVOTHYROXINE] [Concomitant]
     Dosage: 50 MG, DAILY
  4. MEPREDNISONA [Concomitant]
     Active Substance: MEPREDNISONE
     Dosage: 8 MG, DAILY
  5. MEPREDNISONA [Concomitant]
     Active Substance: MEPREDNISONE
     Dosage: 8 MILLIGRAM, QD

REACTIONS (2)
  - Epistaxis [Recovered/Resolved]
  - Cardiovascular disorder [Recovered/Resolved]

NARRATIVE: CASE EVENT DATE: 20190822
